FAERS Safety Report 4288851-8 (Version None)
Quarter: 2004Q1

REPORT INFORMATION
  Report Type: 
  Country: None (occurrence: None)
  Receive Date: 20040209
  Receipt Date: 20031127
  Transmission Date: 20041129
  Serious: Yes (Other)
  Sender: FDA-Public Use
  Company Number: FR-BRISTOL-MYERS SQUIBB COMPANY-12445672

PATIENT
  Age: 66 Year
  Sex: Female

DRUGS (9)
  1. ABATACEPT [Suspect]
     Indication: RHEUMATOID ARTHRITIS
     Route: 042
     Dates: start: 20030911
  2. METHOTREXATE [Suspect]
     Dates: start: 20020801
  3. FOSAMAX [Suspect]
     Dates: start: 20030328
  4. CELEBREX [Suspect]
     Route: 048
     Dates: start: 20030313
  5. MOPRAL [Suspect]
     Route: 048
     Dates: start: 20020401
  6. SPECIAFOLDINE [Concomitant]
     Dates: start: 20020901
  7. PREDNISONE [Concomitant]
     Route: 048
     Dates: start: 20020701
  8. DOLIPRANE [Concomitant]
     Route: 048
     Dates: start: 20010701
  9. OROCAL D3 [Concomitant]
     Route: 048
     Dates: start: 20020101

REACTIONS (1)
  - CYTOLYTIC HEPATITIS [None]
